FAERS Safety Report 7040893-5 (Version None)
Quarter: 2010Q4

REPORT INFORMATION
  Report Type: 
  Country: None (occurrence: None)
  Receive Date: 20101013
  Receipt Date: 20101003
  Transmission Date: 20110411
  Serious: Yes (Hospitalization)
  Sender: FDA-Public Use
  Company Number: US-JNJFOC-20100502701

PATIENT
  Sex: Female
  Weight: 21.77 kg

DRUGS (5)
  1. CHILDREN'S MOTRIN [Suspect]
     Indication: OROPHARYNGEAL PAIN
     Dosage: EVERY 8 HOURS
     Route: 048
  2. CHILDREN'S MOTRIN [Suspect]
     Indication: PYREXIA
     Dosage: EVERY 8 HOURS
     Route: 048
  3. CHILDREN'S MOTRIN [Suspect]
     Indication: PYREXIA
     Dosage: DOSED BY AGE AND WEIGHT, EVERY 6-8 HOURS FOR 3 DAYS, AS NEEDED
     Route: 048
  4. CHILDREN'S MOTRIN [Suspect]
     Indication: OROPHARYNGEAL PAIN
     Dosage: DOSED BY AGE AND WEIGHT, EVERY 6-8 HOURS FOR 3 DAYS, AS NEEDED
     Route: 048
  5. SUPRAX [Suspect]
     Indication: STREPTOCOCCAL INFECTION
     Route: 065

REACTIONS (4)
  - DRUG INEFFECTIVE [None]
  - PRODUCT QUALITY ISSUE [None]
  - SCARLET FEVER [None]
  - VOMITING [None]
